FAERS Safety Report 6714990-5 (Version None)
Quarter: 2010Q2

REPORT INFORMATION
  Report Type: 
  Country: None (occurrence: None)
  Receive Date: 20100507
  Receipt Date: 20100428
  Transmission Date: 20101027
  Serious: Yes (Other)
  Sender: FDA-Public Use
  Company Number: DE-JNJFOC-20100408082

PATIENT
  Sex: Male

DRUGS (3)
  1. FENTANYL [Suspect]
     Indication: ANAESTHESIA
     Route: 042
  2. ETOMIDATE [Suspect]
     Indication: ANAESTHESIA
     Route: 042
  3. ROCURONIUM BROMIDE [Suspect]
     Indication: ANAESTHESIA
     Route: 042

REACTIONS (6)
  - CARDIOGENIC SHOCK [None]
  - GASTROOESOPHAGEAL REFLUX DISEASE [None]
  - HAEMATOCHEZIA [None]
  - MULTI-ORGAN FAILURE [None]
  - RIGHT VENTRICULAR FAILURE [None]
  - VENTRICULAR TACHYCARDIA [None]
